FAERS Safety Report 9553882 (Version 1)
Quarter: 2013Q3

REPORT INFORMATION
  Report Type: Spontaneous
  Country: US (occurrence: None)
  Receive Date: 20130924
  Receipt Date: 20130924
  Transmission Date: 20140515
  Serious: No
  Sender: FDA-Public Use
  Company Number: None

PATIENT
  Age: 54 Year
  Sex: Female
  Weight: 83.92 kg

DRUGS (10)
  1. CELEBREX [Suspect]
     Indication: ARTHRITIS
     Route: 048
     Dates: start: 20120821, end: 20120908
  2. SELEXA [Concomitant]
  3. CRESTOR [Concomitant]
  4. ACYCLOVIR [Concomitant]
  5. MULTI VITAMIN [Concomitant]
  6. GINGER [Concomitant]
  7. VITAMIN D [Concomitant]
  8. FISH OIL [Concomitant]
  9. CQ10 [Concomitant]
  10. VITAMIN E [Concomitant]

REACTIONS (1)
  - Hypersensitivity [None]
